FAERS Safety Report 21209349 (Version 1)
Quarter: 2022Q3

REPORT INFORMATION
  Report Type: Spontaneous
  Country: TR (occurrence: TR)
  Receive Date: 20220813
  Receipt Date: 20220813
  Transmission Date: 20221026
  Serious: Yes (Death, Hospitalization, Other)
  Sender: FDA-Public Use
  Company Number: TR-NATCOUSA-2022-NATCOUSA-000072

PATIENT
  Age: 64 Year
  Sex: Female

DRUGS (1)
  1. IMATINIB MESYLATE [Suspect]
     Active Substance: IMATINIB MESYLATE
     Indication: Gastrointestinal stromal tumour

REACTIONS (7)
  - Pulmonary oedema [Fatal]
  - Ventricular hypokinesia [Fatal]
  - Pleural effusion [Fatal]
  - Pulmonary septal thickening [Fatal]
  - Systolic dysfunction [Fatal]
  - Pulmonary hypertension [Fatal]
  - Cardiogenic shock [Fatal]
